FAERS Safety Report 6201279-6 (Version None)
Quarter: 2009Q2

REPORT INFORMATION
  Report Type: 
  Country: None (occurrence: None)
  Receive Date: 20090526
  Receipt Date: 20090514
  Transmission Date: 20091009
  Serious: Yes (Other)
  Sender: FDA-Public Use
  Company Number: PHHY2009US12199

PATIENT
  Sex: Female

DRUGS (21)
  1. CLIMARA [Suspect]
     Indication: MENOPAUSE
     Dosage: 0.05 MG
     Route: 062
     Dates: start: 19960921, end: 20011005
  2. PROMETRIUM [Suspect]
     Indication: MENOPAUSE
     Dosage: 200 MG DAILY
     Dates: start: 19990101, end: 20070601
  3. VIVELLE-DOT [Suspect]
     Indication: MENOPAUSE
     Dosage: UNK
     Route: 062
     Dates: start: 19990101, end: 20070601
  4. PREMARIN [Suspect]
     Indication: HOT FLUSH
     Dosage: 0.625MG PER DAY
     Route: 048
     Dates: start: 19960801
  5. PROVERA [Suspect]
     Indication: HOT FLUSH
     Dosage: UNK
     Route: 048
     Dates: start: 19960901
  6. ZOCOR [Concomitant]
     Indication: HYPERTENSION
     Dosage: UNK
     Dates: start: 19900101
  7. CITALOPRAM HYDROBROMIDE [Concomitant]
     Indication: DEPRESSION
     Dosage: UNK
     Dates: start: 19900101
  8. TAMOXIFEN CITRATE [Concomitant]
     Indication: BREAST CANCER
  9. NORVASC [Concomitant]
     Indication: HYPERTENSION
     Dosage: UNK
     Dates: start: 19900101
  10. LEVOXYL [Concomitant]
     Indication: HYPOTHYROIDISM
     Dosage: UNK
     Dates: start: 19880101
  11. NEXIUM [Concomitant]
  12. NEURONTIN [Concomitant]
     Indication: BACK PAIN
  13. ACETYLSALICYLIC ACID [Concomitant]
  14. LITHIUM [Concomitant]
     Indication: DEPRESSION
     Dosage: 600MG
     Dates: start: 19990503
  15. PERI-COLACE [Concomitant]
     Indication: CONSTIPATION
     Dosage: UNK
     Dates: start: 19960101
  16. KLONOPIN [Concomitant]
     Indication: DEPRESSION
     Dosage: 0.75MG
  17. PARNATE [Concomitant]
     Indication: DEPRESSION
     Dosage: 3 DF
  18. BENTYL [Concomitant]
     Indication: IRRITABLE BOWEL SYNDROME
  19. VITAMIN D [Concomitant]
     Indication: RICKETS
  20. CALCIUM [Concomitant]
     Indication: RICKETS
  21. TOFRANIL [Concomitant]
     Indication: DEPRESSION

REACTIONS (16)
  - ACANTHOSIS [None]
  - AMNESIA [None]
  - ANXIETY [None]
  - ARTHRALGIA [None]
  - ARTHRITIS [None]
  - ARTHROSCOPY [None]
  - BASAL CELL CARCINOMA [None]
  - BIOPSY BREAST ABNORMAL [None]
  - BREAST CANCER [None]
  - EXCORIATION [None]
  - HERNIA [None]
  - HERNIA REPAIR [None]
  - INFLAMMATION [None]
  - LESION EXCISION [None]
  - NEURODERMATITIS [None]
  - ULTRASOUND BREAST ABNORMAL [None]
